FAERS Safety Report 10537500 (Version 1)
Quarter: 2014Q4

REPORT INFORMATION
  Report Type: Spontaneous
  Country: US (occurrence: None)
  Receive Date: 20141022
  Receipt Date: 20141022
  Transmission Date: 20150529
  Serious: Yes (Hospitalization)
  Sender: FDA-Public Use
  Company Number: None

PATIENT
  Age: 1 Year
  Sex: Female

DRUGS (8)
  1. CYTARABINE. [Suspect]
     Active Substance: CYTARABINE
     Dates: start: 20140915
  2. FLUCONAZOLE INJECTION [Concomitant]
  3. VANCOMYCIN INJECTION [Concomitant]
  4. DAUNORUBICIN [Suspect]
     Active Substance: DAUNORUBICIN
     Dates: start: 20140910
  5. ETOPOSIDE (VP-16) [Suspect]
     Active Substance: ETOPOSIDE
     Dates: start: 20140910
  6. BACTRIM [Concomitant]
     Active Substance: SULFAMETHOXAZOLE\TRIMETHOPRIM
  7. AMPHOTERICIN B LIPOSOMAL INJECTION [Concomitant]
  8. CEFEPIME [Concomitant]
     Active Substance: CEFEPIME\CEFEPIME HYDROCHLORIDE

REACTIONS (10)
  - Hepatosplenomegaly [None]
  - Sepsis [None]
  - Serum sickness [None]
  - Influenza [None]
  - Generalised oedema [None]
  - Hypersensitivity [None]
  - Urine output decreased [None]
  - General physical health deterioration [None]
  - Rash maculo-papular [None]
  - Toxicity to various agents [None]

NARRATIVE: CASE EVENT DATE: 20141007
